FAERS Safety Report 8484108 (Version 3)
Quarter: 2012Q4

REPORT INFORMATION
  Report Type: 
  Country: US (occurrence: US)
  Receive Date: 20120330
  Receipt Date: 20121101
  Transmission Date: 20130627
  Serious: Yes (Hospitalization)
  Sender: FDA-Public Use
  Company Number: US-PFIZER INC-2012075459

PATIENT
  Age: 12 Year
  Sex: Female

DRUGS (4)
  1. REVATIO [Suspect]
     Dosage: UNK
  2. LETAIRIS [Suspect]
     Indication: PULMONARY HYPERTENSION
     Dosage: 10 mg, 1x/day
     Route: 048
     Dates: start: 20120221
  3. TYVASO [Suspect]
     Dosage: UNK
  4. REMODULIN [Concomitant]
     Dosage: UNK
     Route: 058

REACTIONS (2)
  - Chest pain [Not Recovered/Not Resolved]
  - Dizziness [Recovered/Resolved]
